FAERS Safety Report 19977087 (Version 1)
Quarter: 2021Q4

REPORT INFORMATION
  Report Type: Report from Study
  Country: BR (occurrence: BR)
  Receive Date: 20211020
  Receipt Date: 20211020
  Transmission Date: 20220303
  Serious: Yes (Other)
  Sender: FDA-Public Use
  Company Number: BR-JNJFOC-20210948271

PATIENT
  Age: 30 Year
  Sex: Female

DRUGS (1)
  1. SIMPONI [Suspect]
     Active Substance: GOLIMUMAB
     Indication: Ankylosing spondylitis
     Route: 058
     Dates: start: 20210806

REACTIONS (5)
  - Pain [Unknown]
  - Uterine haemorrhage [Unknown]
  - Ankylosing spondylitis [Unknown]
  - Product dose omission issue [Unknown]
  - Product availability issue [Unknown]
